FAERS Safety Report 4928995-8 (Version None)
Quarter: 2006Q1

REPORT INFORMATION
  Report Type: 
  Country: None (occurrence: None)
  Receive Date: 20060223
  Receipt Date: 20060216
  Transmission Date: 20060701
  Serious: Yes (Life-Threatening, Hospitalization, Other)
  Sender: FDA-Public Use
  Company Number: HQWYE319425FEB04

PATIENT
  Age: 69 Year
  Sex: Male
  Weight: 103.06 kg

DRUGS (16)
  1. ROFERON, CONTROL FOR CCI-779 (INTERFERON ALFA, CONTROL FOR CCI-779, IN [Suspect]
     Indication: RENAL CELL CARCINOMA STAGE UNSPECIFIED
     Dosage: 3 MU 3X PER WEEK INCREASED TO 9 MU 3X PER WEEK, SUBCUTANEOUS
     Route: 058
     Dates: start: 20040205, end: 20040217
  2. CENTRUM (MULTIVITAMIN/MULTIMINERAL) [Concomitant]
  3. METOPROLOL [Concomitant]
  4. CARDURA [Concomitant]
  5. ALTACE [Concomitant]
  6. ASPIRIN [Concomitant]
  7. LIPITOR [Concomitant]
  8. INSULIN [Concomitant]
  9. HYDROCODONE [Concomitant]
  10. OXYCONTIN [Concomitant]
  11. NEXIUM [Concomitant]
  12. PROZAC [Concomitant]
  13. FERROUS SULFATE TAB [Concomitant]
  14. MILK OF MAGNESIA TAB [Concomitant]
  15. ZOFRAN [Concomitant]
  16. ACETAMINOPHEN [Concomitant]

REACTIONS (7)
  - BLOOD GLUCOSE INCREASED [None]
  - BLOOD SODIUM DECREASED [None]
  - BUNDLE BRANCH BLOCK [None]
  - DISEASE PROGRESSION [None]
  - DRUG TOXICITY [None]
  - HYPERKALAEMIA [None]
  - RENAL FAILURE ACUTE [None]
